FAERS Safety Report 5398774-9 (Version None)
Quarter: 2007Q3

REPORT INFORMATION
  Report Type: 
  Country: None (occurrence: None)
  Receive Date: 20070724
  Receipt Date: 20070716
  Transmission Date: 20080115
  Serious: Yes (Hospitalization)
  Sender: FDA-Public Use
  Company Number: 070717-0000677

PATIENT
  Age: 36 Year
  Sex: Female

DRUGS (1)
  1. DACTINOMYCIN [Suspect]
     Indication: GESTATIONAL TROPHOBLASTIC TUMOUR
     Dosage: 500 UG; QD; IV
     Route: 042
     Dates: start: 20070701, end: 20070705

REACTIONS (5)
  - IATROGENIC INJURY [None]
  - INCORRECT ROUTE OF DRUG ADMINISTRATION [None]
  - PLEURAL FISTULA [None]
  - PLEURISY [None]
  - PYREXIA [None]
